FAERS Safety Report 4493316-4 (Version None)
Quarter: 2004Q4

REPORT INFORMATION
  Report Type: 
  Country: None (occurrence: None)
  Receive Date: 20041102
  Receipt Date: 20041018
  Transmission Date: 20050328
  Serious: Yes (Other)
  Sender: FDA-Public Use
  Company Number: USA041081363

PATIENT
  Age: 15 Year
  Sex: Male

DRUGS (3)
  1. CYMBALTA [Suspect]
     Indication: DEPRESSION
     Dosage: 60 MG DAY
     Dates: start: 20040928, end: 20041001
  2. WELLBUTRIN [Concomitant]
  3. AMBIEN [Concomitant]

REACTIONS (5)
  - COMA [None]
  - FEELING ABNORMAL [None]
  - LOSS OF CONSCIOUSNESS [None]
  - MOOD SWINGS [None]
  - STARING [None]
